FAERS Safety Report 21576775 (Version 1)
Quarter: 2022Q4

REPORT INFORMATION
  Report Type: Spontaneous
  Country: US (occurrence: US)
  Receive Date: 20221110
  Receipt Date: 20221110
  Transmission Date: 20230113
  Serious: No
  Sender: FDA-Public Use
  Company Number: US-JNJFOC-20221057825

PATIENT
  Sex: Female

DRUGS (2)
  1. MENS ROGAINE EXTRA STRENGTH [Suspect]
     Active Substance: MINOXIDIL
     Indication: Alopecia
     Dosage: DOSE: THE RECOMMENDED DOSAGE TWICE A DAY
     Route: 061
     Dates: start: 2022
  2. MENS ROGAINE EXTRA STRENGTH [Suspect]
     Active Substance: MINOXIDIL
     Indication: Alopecia
     Dosage: DOSE: THE AMOUNT OF THE RECOMMENDED DOSAGE TWICE A DAY
     Route: 061
     Dates: start: 202207, end: 2022

REACTIONS (4)
  - Application site discolouration [Recovered/Resolved]
  - Application site hypersensitivity [Recovered/Resolved]
  - Product use issue [Unknown]
  - Intentional product misuse [Unknown]

NARRATIVE: CASE EVENT DATE: 20220101
